FAERS Safety Report 7744034-8 (Version None)
Quarter: 2011Q3

REPORT INFORMATION
  Report Type: 
  Country: None (occurrence: None)
  Receive Date: 20110912
  Receipt Date: 20110907
  Transmission Date: 20111222
  Serious: Yes (Life-Threatening, Hospitalization)
  Sender: FDA-Public Use
  Company Number: FR-SANOFI-AVENTIS-2011SA057699

PATIENT
  Age: 83 Year
  Sex: Male

DRUGS (13)
  1. SPECIAFOLDINE [Concomitant]
  2. PLAVIX [Concomitant]
     Dates: start: 20110607, end: 20110607
  3. XANAX [Concomitant]
  4. POTASSIUM CHLORIDE [Concomitant]
  5. FUROSEMIDE [Suspect]
     Indication: CARDIORENAL SYNDROME
     Route: 065
  6. CALCIPARINE [Concomitant]
     Dates: start: 20110607, end: 20110607
  7. ASPIRIN [Concomitant]
     Dates: start: 20110607
  8. ALDACTONE [Suspect]
  9. IKOREL [Suspect]
     Indication: CARDIORENAL SYNDROME
     Route: 048
     Dates: end: 20110607
  10. NITROGLYCERIN [Concomitant]
  11. EUPRESSYL [Concomitant]
  12. OLMESARTAN MEDOXOMIL [Suspect]
  13. CORDARONE [Concomitant]

REACTIONS (3)
  - RENAL FAILURE [None]
  - HYPERKALAEMIA [None]
  - RENAL FAILURE ACUTE [None]
